FAERS Safety Report 17759749 (Version 2)
Quarter: 2020Q4

REPORT INFORMATION
  Report Type: Spontaneous
  Country: CN (occurrence: CN)
  Receive Date: 20200508
  Receipt Date: 20201014
  Transmission Date: 20210113
  Serious: Yes (Hospitalization, Other)
  Sender: FDA-Public Use
  Company Number: CN-LUPIN PHARMACEUTICALS INC.-2020-02025

PATIENT
  Age: 64 Year
  Sex: Male

DRUGS (7)
  1. METHYLPREDNISOLONE. [Suspect]
     Active Substance: METHYLPREDNISOLONE
     Dosage: 40 UNK,  ONCE A DAY FOR 2 WEEKS
     Route: 048
  2. METHYLPREDNISOLONE. [Suspect]
     Active Substance: METHYLPREDNISOLONE
     Indication: CONDITION AGGRAVATED
     Dosage: 60 MILLIGRAM, QD, 60 MG, ONCE A DAY, INTRAVENOUSLY INSTILLATION FOR 1 WEEK
     Route: 042
  3. METHYLPREDNISOLONE. [Suspect]
     Active Substance: METHYLPREDNISOLONE
     Dosage: DOSE WAS INCREASED FROM 14 MG/D TO 24 MG/D
     Route: 048
  4. METHYLPREDNISOLONE. [Suspect]
     Active Substance: METHYLPREDNISOLONE
     Indication: COLITIS ULCERATIVE
     Dosage: 40 MILLIGRAM, QD, ONCE A DAY, INTRAVENOUSLY WAS GIVEN FOR 2 WEEKS,  40 MG AGAIN,
     Route: 042
  5. METHYLPREDNISOLONE. [Suspect]
     Active Substance: METHYLPREDNISOLONE
     Dosage: 2 MG EVERY 2 WEEKS FOR LESS THAN 16 MG / D OF SPEED REDUCTION
     Route: 048
  6. METHYLPREDNISOLONE. [Suspect]
     Active Substance: METHYLPREDNISOLONE
     Dosage: 4 MILLIGRAM,  4 MG/D EVERY 10 TO 14 DAYS AFTER THE CONDITION WAS STABILIZED
     Route: 048
  7. MESALAZINE [Concomitant]
     Active Substance: MESALAMINE
     Indication: COLITIS ULCERATIVE
     Dosage: 4 GRAM
     Route: 048

REACTIONS (2)
  - Human herpesvirus 8 infection [Unknown]
  - Kaposi^s sarcoma [Recovering/Resolving]
